FAERS Safety Report 11628228 (Version 1)
Quarter: 2015Q4

REPORT INFORMATION
  Report Type: Spontaneous
  Country: US (occurrence: None)
  Receive Date: 20151013
  Receipt Date: 20151013
  Transmission Date: 20160304
  Serious: Yes (Death)
  Sender: FDA-Public Use
  Company Number: None

PATIENT
  Age: 23 Year
  Sex: Male
  Weight: 54.43 kg

DRUGS (2)
  1. HERBAL TEAS WITH GINGER [Concomitant]
  2. REMICADE [Suspect]
     Active Substance: INFLIXIMAB
     Indication: CROHN^S DISEASE
     Dosage: INTO A VEIN
     Dates: start: 20061001, end: 20151001

REACTIONS (7)
  - Dyspnoea [None]
  - Fall [None]
  - Pharyngeal neoplasm [None]
  - Asphyxia [None]
  - Dysphonia [None]
  - Brain death [None]
  - Gastrooesophageal reflux disease [None]

NARRATIVE: CASE EVENT DATE: 20141027
